FAERS Safety Report 6520666-X (Version None)
Quarter: 2009Q4

REPORT INFORMATION
  Report Type: 
  Country: None (occurrence: None)
  Receive Date: 20091229
  Receipt Date: 20091222
  Transmission Date: 20100525
  Serious: Yes (Hospitalization)
  Sender: FDA-Public Use
  Company Number: US-CUBIST-2009S1000382

PATIENT
  Age: 58 Year
  Sex: Female
  Weight: 52 kg

DRUGS (16)
  1. CUBICIN [Suspect]
     Indication: DECUBITUS ULCER
     Route: 042
     Dates: start: 20090619, end: 20090627
  2. CUBICIN [Suspect]
     Route: 042
     Dates: start: 20090619, end: 20090627
  3. XANAX [Concomitant]
     Indication: DRUG USE FOR UNKNOWN INDICATION
  4. MORPHINE [Concomitant]
     Indication: DRUG USE FOR UNKNOWN INDICATION
  5. PHENERGAN /00488301/ [Concomitant]
     Indication: DRUG USE FOR UNKNOWN INDICATION
  6. ASCORBIC ACID [Concomitant]
     Indication: DRUG USE FOR UNKNOWN INDICATION
  7. WELLBUTRIN [Concomitant]
     Indication: DRUG USE FOR UNKNOWN INDICATION
  8. DIFLUCAN [Concomitant]
     Indication: DRUG USE FOR UNKNOWN INDICATION
  9. REGLAN [Concomitant]
     Indication: DRUG USE FOR UNKNOWN INDICATION
  10. HYDROCHLOROTHIAZIDE [Concomitant]
     Indication: DRUG USE FOR UNKNOWN INDICATION
  11. LOPRESSOR [Concomitant]
     Indication: DRUG USE FOR UNKNOWN INDICATION
  12. PANTOPRAZOLE [Concomitant]
     Indication: DRUG USE FOR UNKNOWN INDICATION
  13. MIRALAX [Concomitant]
     Indication: DRUG USE FOR UNKNOWN INDICATION
  14. ZINC [Concomitant]
     Indication: DRUG USE FOR UNKNOWN INDICATION
  15. KAYEXALATE [Concomitant]
     Indication: DRUG USE FOR UNKNOWN INDICATION
  16. DULCOLAX [Concomitant]
     Indication: DRUG USE FOR UNKNOWN INDICATION

REACTIONS (1)
  - DEEP VEIN THROMBOSIS [None]
